FAERS Safety Report 25151762 (Version 2)
Quarter: 2025Q3

REPORT INFORMATION
  Report Type: Report from Study
  Country: JP (occurrence: JP)
  Receive Date: 20250402
  Receipt Date: 20250802
  Transmission Date: 20251020
  Serious: Yes (Other)
  Sender: ALEXION PHARMACEUTICALS
  Company Number: JP-ALEXION-A201301158

PATIENT
  Age: 55 Year
  Sex: Female
  Weight: 54 kg

DRUGS (15)
  1. SOLIRIS [Suspect]
     Active Substance: ECULIZUMAB
     Indication: Paroxysmal nocturnal haemoglobinuria
     Dosage: 600 MILLIGRAM, QW
     Dates: start: 20100624, end: 20100715
  2. SOLIRIS [Suspect]
     Active Substance: ECULIZUMAB
     Dosage: 900 MILLIGRAM, Q2W
     Dates: start: 20100729
  3. PREDONINE [Concomitant]
     Active Substance: PREDNISOLONE
     Indication: Paroxysmal nocturnal haemoglobinuria
  4. PREDONINE [Concomitant]
     Active Substance: PREDNISOLONE
     Dates: start: 20071005, end: 20100715
  5. PREDONINE [Concomitant]
     Active Substance: PREDNISOLONE
     Dates: start: 20100716, end: 20100728
  6. PREDONINE [Concomitant]
     Active Substance: PREDNISOLONE
     Dates: start: 20100729, end: 20100811
  7. PREDONINE [Concomitant]
     Active Substance: PREDNISOLONE
     Dates: start: 20100812, end: 20100825
  8. PREDONINE [Concomitant]
     Active Substance: PREDNISOLONE
     Dates: start: 20100826, end: 20101006
  9. PREDONINE [Concomitant]
     Active Substance: PREDNISOLONE
     Dates: start: 20101007, end: 20101020
  10. PREDONINE [Concomitant]
     Active Substance: PREDNISOLONE
     Dates: start: 20101021, end: 20101103
  11. PREDONINE [Concomitant]
     Active Substance: PREDNISOLONE
     Dates: start: 20101104, end: 20101201
  12. PREDONINE [Concomitant]
     Active Substance: PREDNISOLONE
  13. SODIUM FERROUS CITRATE [Concomitant]
     Active Substance: SODIUM FERROUS CITRATE
     Indication: Paroxysmal nocturnal haemoglobinuria
     Dosage: 50 MG, QD
  14. FOLIC ACID [Concomitant]
     Active Substance: FOLIC ACID
     Indication: Paroxysmal nocturnal haemoglobinuria
     Dosage: 15 MG, QD
  15. BEZAFIBRATE [Concomitant]
     Active Substance: BEZAFIBRATE
     Dosage: 400 MG, QD
     Dates: start: 1998

REACTIONS (7)
  - Haemolysis [Recovered/Resolved]
  - Deafness [Recovering/Resolving]
  - Vertigo positional [Recovered/Resolved]
  - Gastroenteritis [Recovered/Resolved]
  - Nasopharyngitis [Recovered/Resolved]
  - Infection [Recovered/Resolved]
  - Bronchitis [Recovered/Resolved]

NARRATIVE: CASE EVENT DATE: 20120524
